FAERS Safety Report 25151888 (Version 5)
Quarter: 2025Q2

REPORT INFORMATION
  Report Type: Report from Study
  Country: DE (occurrence: DE)
  Receive Date: 20250402
  Receipt Date: 20250624
  Transmission Date: 20250717
  Serious: Yes (Hospitalization, Other)
  Sender: JOHNSON AND JOHNSON
  Company Number: DE-JNJFOC-20250377136

PATIENT
  Age: 70 Year
  Sex: Male
  Weight: 78.5 kg

DRUGS (7)
  1. CILTACABTAGENE AUTOLEUCEL [Suspect]
     Active Substance: CILTACABTAGENE AUTOLEUCEL
     Indication: Plasma cell myeloma
     Route: 042
     Dates: start: 20250303, end: 20250303
  2. ACYCLOVIR [Concomitant]
     Active Substance: ACYCLOVIR
     Indication: Prophylaxis
     Route: 048
     Dates: start: 20250303, end: 20250314
  3. AMPHOTERICIN B [Concomitant]
     Active Substance: AMPHOTERICIN B
     Indication: Prophylaxis
     Route: 048
     Dates: start: 20250303, end: 20250304
  4. SODIUM CHLORIDE [Concomitant]
     Active Substance: SODIUM CHLORIDE
     Indication: Product substitution
     Dosage: 10 ML/HR
     Route: 042
     Dates: start: 20250303, end: 20250303
  5. SODIUM CHLORIDE [Concomitant]
     Active Substance: SODIUM CHLORIDE
     Indication: Prophylaxis
     Dosage: 10 ML/HR
     Route: 042
     Dates: start: 20250304, end: 20250305
  6. INNOHEP [Concomitant]
     Active Substance: TINZAPARIN SODIUM
     Indication: Prophylaxis
     Route: 058
     Dates: start: 20250303, end: 20250314
  7. COTRIMOXAZOLE [Concomitant]
     Active Substance: SULFAMETHOXAZOLE\TRIMETHOPRIM
     Indication: Infection prophylaxis
     Route: 048
     Dates: start: 20250305, end: 20250307

REACTIONS (9)
  - Hypogammaglobulinaemia [Recovered/Resolved]
  - Leukopenia [Recovered/Resolved]
  - Cytokine release syndrome [Recovered/Resolved]
  - Facial paralysis [Recovered/Resolved]
  - Thrombocytopenia [Recovering/Resolving]
  - Immune effector cell-associated haematotoxicity [Recovered/Resolved]
  - Fatigue [Recovered/Resolved]
  - Headache [Recovered/Resolved]
  - Anaemia [Recovering/Resolving]

NARRATIVE: CASE EVENT DATE: 20250303
